FAERS Safety Report 22623408 (Version 1)
Quarter: 2023Q2

REPORT INFORMATION
  Report Type: Spontaneous
  Country: KR (occurrence: KR)
  Receive Date: 20230621
  Receipt Date: 20230621
  Transmission Date: 20230722
  Serious: Yes (Other)
  Sender: FDA-Public Use
  Company Number: KR-JNJFOC-20230628759

PATIENT
  Age: 32 Year
  Sex: Male

DRUGS (3)
  1. INVEGA SUSTENNA [Suspect]
     Active Substance: PALIPERIDONE PALMITATE
     Indication: Schizophrenia
     Route: 030
     Dates: start: 2020
  2. INVEGA SUSTENNA [Suspect]
     Active Substance: PALIPERIDONE PALMITATE
  3. INVEGA SUSTENNA [Suspect]
     Active Substance: PALIPERIDONE PALMITATE

REACTIONS (7)
  - Suicide attempt [Recovered/Resolved]
  - Persecutory delusion [Recovered/Resolved]
  - Restlessness [Recovered/Resolved]
  - Akathisia [Recovered/Resolved]
  - Aggression [Recovered/Resolved]
  - Treatment noncompliance [Unknown]
  - Product dose omission issue [Unknown]
